FAERS Safety Report 6865547-7 (Version None)
Quarter: 2010Q3

REPORT INFORMATION
  Report Type: 
  Country: None (occurrence: None)
  Receive Date: 20100721
  Receipt Date: 20080424
  Transmission Date: 20110219
  Serious: No
  Sender: FDA-Public Use
  Company Number: US-PFIZER INC-2008037810

PATIENT
  Sex: Female
  Weight: 63.6 kg

DRUGS (5)
  1. CHANTIX [Suspect]
     Indication: SMOKING CESSATION THERAPY
     Route: 048
     Dates: start: 20071001
  2. LOVASTATIN [Concomitant]
  3. VALSARTAN [Concomitant]
  4. MULTI-VITAMINS [Concomitant]
  5. ANTIHYPERTENSIVES [Concomitant]

REACTIONS (5)
  - ABDOMINAL DISCOMFORT [None]
  - AMNESIA [None]
  - INTENTIONAL DRUG MISUSE [None]
  - SLUGGISHNESS [None]
  - WEIGHT INCREASED [None]
